FAERS Safety Report 4658891-5 (Version None)
Quarter: 2005Q2

REPORT INFORMATION
  Report Type: 
  Country: None (occurrence: None)
  Receive Date: 20050509
  Receipt Date: 20050425
  Transmission Date: 20051028
  Serious: Yes (Other)
  Sender: FDA-Public Use
  Company Number: 200511722BCC

PATIENT
  Sex: Male

DRUGS (1)
  1. ALKA SELTZER [Suspect]
     Dosage: 975 MG, ONCE, ORAL
     Route: 048
     Dates: start: 20050425

REACTIONS (3)
  - FOAMING AT MOUTH [None]
  - INTENTIONAL MISUSE [None]
  - TREMOR [None]
